FAERS Safety Report 17662254 (Version 1)
Quarter: 2020Q2

REPORT INFORMATION
  Report Type: Report from Study
  Country: JP (occurrence: JP)
  Receive Date: 20200413
  Receipt Date: 20200413
  Transmission Date: 20200713
  Serious: Yes (Hospitalization, Other)
  Sender: FDA-Public Use
  Company Number: JP-ROCHE-1240476

PATIENT

DRUGS (3)
  1. 5-FLUOROURACIL [FLUOROURACIL] [Suspect]
     Active Substance: FLUOROURACIL
     Indication: COLORECTAL CANCER METASTATIC
     Dosage: BOLUS DAY 1, 8, 15
     Route: 040
  2. LEUCOVORIN CALCIUM. [Suspect]
     Active Substance: LEUCOVORIN CALCIUM
     Indication: COLORECTAL CANCER METASTATIC
     Dosage: BOLUS DAY 1, 8, 15
     Route: 040
  3. BEVACIZUMAB. [Suspect]
     Active Substance: BEVACIZUMAB
     Indication: COLORECTAL CANCER METASTATIC
     Dosage: DAY 1, 15,
     Route: 065

REACTIONS (15)
  - Pulmonary embolism [Unknown]
  - Decreased appetite [Unknown]
  - Febrile neutropenia [Unknown]
  - Neutropenia [Unknown]
  - Mucosal inflammation [Unknown]
  - Leukopenia [Unknown]
  - Diarrhoea [Unknown]
  - Fatigue [Unknown]
  - Proteinuria [Unknown]
  - Seizure [Unknown]
  - Thrombocytopenia [Unknown]
  - Nausea [Unknown]
  - Anaemia [Unknown]
  - Hypertension [Unknown]
  - Stomatitis [Unknown]
